FAERS Safety Report 7376123-4 (Version None)
Quarter: 2011Q1

REPORT INFORMATION
  Report Type: 
  Country: None (occurrence: None)
  Receive Date: 20110325
  Receipt Date: 20110321
  Transmission Date: 20110831
  Serious: Yes (Life-Threatening)
  Sender: FDA-Public Use
  Company Number: PHHY2011GB23471

PATIENT
  Age: 31 Year
  Sex: Male
  Weight: 80 kg

DRUGS (7)
  1. PHENOXYMETHYLPENICILLIN [Suspect]
     Dosage: UNK
     Dates: start: 20110310
  2. CITALOPRAM [Concomitant]
     Dosage: UNK
     Dates: start: 20110301
  3. OLANZAPINE [Concomitant]
     Dosage: UNK
     Dates: start: 20110301
  4. PARACETAMOL [Concomitant]
     Dosage: UNK
     Dates: start: 20110301
  5. LISINOPRIL [Concomitant]
     Dosage: UNK
     Dates: start: 20110214
  6. MIRTAZAPINE [Concomitant]
     Dosage: UNK
     Dates: start: 20110301
  7. BENDROFLUMETHIAZIDE [Concomitant]
     Dosage: UNK
     Dates: start: 20110214

REACTIONS (1)
  - HYPERVENTILATION [None]
